FAERS Safety Report 8256525-4 (Version None)
Quarter: 2012Q2

REPORT INFORMATION
  Report Type: 
  Country: None (occurrence: None)
  Receive Date: 20120403
  Receipt Date: 20120326
  Transmission Date: 20120825
  Serious: Yes (Other)
  Sender: FDA-Public Use
  Company Number: US-ABBOTT-12P-163-0920031-00

PATIENT
  Sex: Male

DRUGS (3)
  1. ANDROGEL [Suspect]
     Indication: BLOOD TESTOSTERONE DECREASED
     Route: 061
     Dates: start: 20020101
  2. DOXAZOSIN MESYLATE [Concomitant]
     Indication: PRODUCT USED FOR UNKNOWN INDICATION
     Route: 048
  3. NAPROXEN (ALEVE) [Concomitant]
     Indication: PRODUCT USED FOR UNKNOWN INDICATION

REACTIONS (7)
  - BLOOD TESTOSTERONE DECREASED [None]
  - PROSTATIC SPECIFIC ANTIGEN INCREASED [None]
  - PROSTATE INFECTION [None]
  - PAIN [None]
  - BACTERIURIA [None]
  - MYOCARDIAL INFARCTION [None]
  - PROSTATOMEGALY [None]
